FAERS Safety Report 15435481 (Version 1)
Quarter: 2018Q4

REPORT INFORMATION
  Report Type: Spontaneous
  Country: NL (occurrence: NL)
  Receive Date: 20180927
  Receipt Date: 20180927
  Transmission Date: 20190204
  Serious: Yes (Other)
  Sender: FDA-Public Use
  Company Number: NL-TEVA-2018-NL-958980

PATIENT
  Age: 47 Year
  Sex: Female
  Weight: 66 kg

DRUGS (1)
  1. METRONIDAZOL TABLET, 500 MG (MILLIGRAM) [Suspect]
     Active Substance: METRONIDAZOLE
     Indication: PARASITIC GASTROENTERITIS
     Dosage: 3X DAAGS 500 MG
     Route: 065
     Dates: start: 20180820, end: 20180826

REACTIONS (3)
  - Angioedema [Recovering/Resolving]
  - Hypersensitivity [Recovered/Resolved]
  - Urticaria [Recovered/Resolved]

NARRATIVE: CASE EVENT DATE: 20180824
